FAERS Safety Report 4903491-2 (Version None)
Quarter: 2006Q1

REPORT INFORMATION
  Report Type: 
  Country: None (occurrence: None)
  Receive Date: 20060203
  Receipt Date: 20051003
  Transmission Date: 20060701
  Serious: Yes (Hospitalization)
  Sender: FDA-Public Use
  Company Number: B0407867A

PATIENT
  Age: 1 Month
  Sex: 0

DRUGS (1)
  1. LAMICTAL [Suspect]
     Dosage: SEE TEXT

REACTIONS (7)
  - AGITATION NEONATAL [None]
  - ANOREXIA [None]
  - DRUG EXPOSURE DURING PREGNANCY [None]
  - DRUG EXPOSURE VIA BREAST MILK [None]
  - DRUG WITHDRAWAL SYNDROME NEONATAL [None]
  - IRRITABILITY [None]
  - NEONATAL DISORDER [None]
